FAERS Safety Report 11071106 (Version 1)
Quarter: 2015Q2

REPORT INFORMATION
  Report Type: Spontaneous
  Country: US (occurrence: US)
  Receive Date: 20150428
  Receipt Date: 20150428
  Transmission Date: 20150821
  Serious: Yes (Death, Hospitalization, Disabling, Other)
  Sender: FDA-Public Use
  Company Number: US-GLAXOSMITHKLINE INC.-A0006090A

PATIENT
  Age: 42 Year
  Sex: Female
  Weight: 80 kg

DRUGS (14)
  1. TAGAMET [Concomitant]
     Active Substance: CIMETIDINE
     Indication: PEPTIC ULCER
     Route: 048
  2. ADVIL [Concomitant]
     Active Substance: IBUPROFEN
  3. HYDROCODONE [Concomitant]
     Active Substance: HYDROCODONE
  4. PROZAC [Concomitant]
     Active Substance: FLUOXETINE HYDROCHLORIDE
  5. FLURAZEPAM [Concomitant]
     Active Substance: FLURAZEPAM\FLURAZEPAM HYDROCHLORIDE
  6. SELDANE [Concomitant]
     Active Substance: TERFENADINE
  7. TAVIST D [Concomitant]
  8. PANMIST LA [Concomitant]
  9. VALIUM [Concomitant]
     Active Substance: DIAZEPAM
     Route: 048
  10. ZOVIRAX [Concomitant]
     Active Substance: ACYCLOVIR
  11. ATENOLOL. [Concomitant]
     Active Substance: ATENOLOL
  12. PROMETHAZINE HYDROCHLORIDE. [Concomitant]
     Active Substance: PROMETHAZINE HYDROCHLORIDE
  13. IMITREX [Suspect]
     Active Substance: SUMATRIPTAN\SUMATRIPTAN SUCCINATE
     Indication: MIGRAINE
     Route: 058
     Dates: start: 199304, end: 19940830
  14. AMITRIPTYLINE [Concomitant]
     Active Substance: AMITRIPTYLINE

REACTIONS (12)
  - Brain injury [Unknown]
  - Electroencephalogram abnormal [Unknown]
  - Chest discomfort [Unknown]
  - Brain hypoxia [Unknown]
  - Anaphylactic reaction [Unknown]
  - Chest pain [Unknown]
  - Myoclonus [Unknown]
  - Ventricular fibrillation [Unknown]
  - Pupil fixed [Unknown]
  - Cardiac arrest [Fatal]
  - Apallic syndrome [Unknown]
  - Vomiting [Unknown]

NARRATIVE: CASE EVENT DATE: 19940830
